FAERS Safety Report 16183098 (Version 1)
Quarter: 2019Q2

REPORT INFORMATION
  Report Type: Spontaneous
  Country: ES (occurrence: ES)
  Receive Date: 20190411
  Receipt Date: 20190411
  Transmission Date: 20190711
  Serious: Yes (Other)
  Sender: FDA-Public Use
  Company Number: ES-009507513-1904ESP003874

PATIENT
  Age: 68 Year
  Sex: Female

DRUGS (2)
  1. PEMBROLIZUMAB. [Suspect]
     Active Substance: PEMBROLIZUMAB
     Indication: MALIGNANT MELANOMA
     Dosage: UNK
  2. EPACADOSTAT [Suspect]
     Active Substance: EPACADOSTAT
     Dosage: UNK
     Route: 048

REACTIONS (1)
  - Juvenile idiopathic arthritis [Unknown]
